FAERS Safety Report 9620088 (Version 2)
Quarter: 2013Q4

REPORT INFORMATION
  Report Type: Other
  Country: GB (occurrence: GB)
  Receive Date: 20131014
  Receipt Date: 20131014
  Transmission Date: 20140711
  Serious: Yes (Other)
  Sender: FDA-Public Use
  Company Number: GB-TAKEDA-THQ2013A03722

PATIENT
  Sex: 0

DRUGS (13)
  1. LANSOPRAZOLE [Suspect]
     Dosage: 30 MG, UNK
  2. CITALOPRAM [Suspect]
     Dosage: 40 MG, UNK
     Route: 048
  3. PREDNISOLONE [Concomitant]
  4. MYCOPHENOLATE MOFETIL [Concomitant]
  5. CETIRIZINE [Concomitant]
  6. ACETYLSALICYLIC ACID [Concomitant]
  7. MOVICOL [Concomitant]
  8. DOXAZOSIN [Concomitant]
  9. BISACODYL [Concomitant]
  10. MEBEVERINE [Concomitant]
  11. PEPPERMINT OIL [Concomitant]
  12. MINOCYCLINE [Concomitant]
  13. SALBUTAMOL [Concomitant]

REACTIONS (3)
  - Gynaecomastia [Not Recovered/Not Resolved]
  - Hyperprolactinaemia [Not Recovered/Not Resolved]
  - Emotional distress [Not Recovered/Not Resolved]
